FAERS Safety Report 4565123-5 (Version None)
Quarter: 2005Q1

REPORT INFORMATION
  Report Type: 
  Country: None (occurrence: None)
  Receive Date: 20050126
  Receipt Date: 20050126
  Transmission Date: 20050727
  Serious: Yes (Hospitalization)
  Sender: FDA-Public Use
  Company Number: None

PATIENT
  Age: 57 Year
  Sex: Male
  Weight: 108.8633 kg

DRUGS (7)
  1. CLOZAPINE [Suspect]
     Indication: PARANOIA
     Dosage: 375-500 MG
     Dates: start: 19950101
  2. CLOZAPINE [Suspect]
     Indication: SCHIZOPHRENIA
     Dosage: 375-500 MG
     Dates: start: 19950101
  3. ZYPREXA [Concomitant]
  4. DEPAKOTE [Concomitant]
  5. LORAZEPAM [Concomitant]
  6. AMANTADINE [Concomitant]
  7. COGENTIN [Concomitant]

REACTIONS (4)
  - ABNORMAL BEHAVIOUR [None]
  - AGITATION [None]
  - CONDITION AGGRAVATED [None]
  - DELUSION [None]
